FAERS Safety Report 6703004-9 (Version None)
Quarter: 2010Q2

REPORT INFORMATION
  Report Type: 
  Country: None (occurrence: None)
  Receive Date: 20100429
  Receipt Date: 20100429
  Transmission Date: 20101027
  Serious: Yes (Other)
  Sender: FDA-Public Use
  Company Number: None

PATIENT
  Age: 49 Year
  Sex: Male

DRUGS (6)
  1. GADOLINIUM [Suspect]
     Indication: NUCLEAR MAGNETIC RESONANCE IMAGING
     Dates: start: 20090919
  2. TRUVADA [Concomitant]
  3. RITONAVIR [Concomitant]
  4. LEVOTHYROXINE [Concomitant]
  5. ATAZANAVIR [Concomitant]
  6. METOPROLOL XL [Concomitant]

REACTIONS (2)
  - PRURITUS [None]
  - URTICARIA [None]
